FAERS Safety Report 9824908 (Version 2)
Quarter: 2014Q1

REPORT INFORMATION
  Report Type: Spontaneous
  Country: RO (occurrence: RO)
  Receive Date: 20140117
  Receipt Date: 20140128
  Transmission Date: 20141002
  Serious: Yes (Other)
  Sender: FDA-Public Use
  Company Number: RO-BRISTOL-MYERS SQUIBB COMPANY-19988609

PATIENT
  Age: 1 Day
  Sex: Male
  Weight: 1.48 kg

DRUGS (1)
  1. BARACLUDE [Suspect]
     Dosage: STOPPED ON 18APR2013, RESTARTED ON 30OCT2013
     Route: 064
     Dates: end: 201304

REACTIONS (2)
  - Premature baby [Unknown]
  - Retinopathy of prematurity [Unknown]
